FAERS Safety Report 9899968 (Version 2)
Quarter: 2014Q2

REPORT INFORMATION
  Report Type: Spontaneous
  Country: US (occurrence: US)
  Receive Date: 20140214
  Receipt Date: 20140515
  Transmission Date: 20141212
  Serious: Yes (Hospitalization, Other)
  Sender: FDA-Public Use
  Company Number: US-GILEAD-2014-0094137

PATIENT
  Age: 47 Year
  Sex: Female

DRUGS (7)
  1. SOVALDI [Suspect]
     Indication: CHRONIC HEPATITIS C
     Dosage: UNK
     Route: 065
     Dates: start: 20140131
  2. COUMADIN                           /00014802/ [Suspect]
     Indication: PULMONARY EMBOLISM
     Dosage: UNK
     Route: 065
  3. RIBAVIRIN [Concomitant]
     Dosage: UNK
     Dates: start: 20140131
  4. PEGINTERFERON [Concomitant]
     Dosage: UNK
     Dates: start: 20140131
  5. CITALOPRAM [Concomitant]
  6. INSULIN [Concomitant]
  7. LOVENOX [Concomitant]

REACTIONS (4)
  - Urosepsis [Unknown]
  - International normalised ratio increased [Recovered/Resolved]
  - Drug interaction [Unknown]
  - Anaemia [Unknown]
